FAERS Safety Report 25771595 (Version 1)
Quarter: 2025Q3

REPORT INFORMATION
  Report Type: Spontaneous
  Country: US (occurrence: US)
  Receive Date: 20250908
  Receipt Date: 20250908
  Transmission Date: 20251021
  Serious: No
  Sender: DOMPE FARMACEUTICI
  Company Number: US-FARMAPROD-202505-1478

PATIENT
  Sex: Male

DRUGS (29)
  1. OXERVATE [Suspect]
     Active Substance: CENEGERMIN-BKBJ
     Indication: Neurotrophic keratopathy
     Route: 047
     Dates: start: 20250424
  2. REFRESH CELLUVISC [Concomitant]
     Active Substance: CARBOXYMETHYLCELLULOSE SODIUM
  3. REFRESH TEARS [Concomitant]
     Active Substance: CARBOXYMETHYLCELLULOSE SODIUM
  4. OFLOXACIN [Concomitant]
     Active Substance: OFLOXACIN
  5. ZINC [Concomitant]
     Active Substance: ZINC
  6. HERBALS\TURMERIC [Concomitant]
     Active Substance: HERBALS\TURMERIC
  7. QUERCETIN [Concomitant]
     Active Substance: QUERCETIN
  8. PROBIOTICS NOS [Concomitant]
     Active Substance: PROBIOTICS NOS
  9. MAGNESIUM [Concomitant]
     Active Substance: MAGNESIUM
  10. VITAMIN D3 [Concomitant]
     Active Substance: CHOLECALCIFEROL
  11. COENZIMA Q10 [UBIDECARENONE] [Concomitant]
  12. CITICOLINE [Concomitant]
     Active Substance: CITICOLINE
  13. VITAMIN C [Concomitant]
     Active Substance: ASCORBIC ACID
  14. VITAMIN B12 [Concomitant]
     Active Substance: CYANOCOBALAMIN
  15. VITAMIN B COMPLEX [Concomitant]
     Active Substance: CYANOCOBALAMIN\DEXPANTHENOL\NIACINAMIDE\PYRIDOXINE HYDROCHLORIDE\RIBOFLAVIN 5^-PHOSPHATE SODIUM\THIA
  16. ASPIRIN [Concomitant]
     Active Substance: ASPIRIN
  17. HUMALOG KWIKPEN [Concomitant]
     Active Substance: INSULIN LISPRO
  18. TOUJEO [Concomitant]
     Active Substance: INSULIN GLARGINE
  19. ZETIA [Concomitant]
     Active Substance: EZETIMIBE
  20. TAMSULOSIN HYDROCHLORIDE [Concomitant]
     Active Substance: TAMSULOSIN HYDROCHLORIDE
  21. TADALAFIL [Concomitant]
     Active Substance: TADALAFIL
  22. METFORMIN HYDROCHLORIDE [Concomitant]
     Active Substance: METFORMIN HYDROCHLORIDE
  23. LISINOPRIL [Concomitant]
     Active Substance: LISINOPRIL
  24. LEVOTHYROXINE SODIUM [Concomitant]
     Active Substance: LEVOTHYROXINE SODIUM
  25. FINASTERIDE [Concomitant]
     Active Substance: FINASTERIDE
  26. FAMOTIDINE [Concomitant]
     Active Substance: FAMOTIDINE
  27. ROSUVASTATIN CALCIUM [Concomitant]
     Active Substance: ROSUVASTATIN CALCIUM
  28. CREON [Concomitant]
     Active Substance: PANCRELIPASE AMYLASE\PANCRELIPASE LIPASE\PANCRELIPASE PROTEASE
  29. FARXIGA [Concomitant]
     Active Substance: DAPAGLIFLOZIN PROPANEDIOL

REACTIONS (1)
  - Skin neoplasm excision [Unknown]
